FAERS Safety Report 6261555-8 (Version None)
Quarter: 2009Q3

REPORT INFORMATION
  Report Type: 
  Country: None (occurrence: None)
  Receive Date: 20090709
  Receipt Date: 20090630
  Transmission Date: 20100115
  Serious: Yes (Hospitalization, Other)
  Sender: FDA-Public Use
  Company Number: PHHO2009JP04585

PATIENT
  Sex: Male
  Weight: 64 kg

DRUGS (8)
  1. AMN107 AMN+CAP [Suspect]
     Indication: GASTROINTESTINAL STROMAL TUMOUR
     Dosage: 800 MG, QD
     Route: 048
     Dates: start: 20090330, end: 20090403
  2. AMN107 AMN+CAP [Suspect]
     Dosage: 400MG DAILY
     Dates: start: 20090408
  3. HYPEN [Concomitant]
  4. MUCOSTA [Concomitant]
  5. TIENAM [Concomitant]
  6. PURSENNID [Concomitant]
     Indication: CONSTIPATION
  7. INTRALIPID 10% [Concomitant]
  8. LOXOPROFEN SODIUM [Concomitant]

REACTIONS (12)
  - ABDOMINAL TENDERNESS [None]
  - BILIRUBIN CONJUGATED INCREASED [None]
  - BLOOD BILIRUBIN INCREASED [None]
  - CONSTIPATION [None]
  - DECREASED APPETITE [None]
  - INFECTION [None]
  - JAUNDICE [None]
  - MALAISE [None]
  - PAIN [None]
  - PNEUMONIA [None]
  - PYREXIA [None]
  - TUMOUR NECROSIS [None]
